FAERS Safety Report 12468552 (Version 2)
Quarter: 2016Q2

REPORT INFORMATION
  Report Type: Spontaneous
  Country: BR (occurrence: BR)
  Receive Date: 20160615
  Receipt Date: 20160623
  Transmission Date: 20160815
  Serious: Yes (Hospitalization, Other)
  Sender: FDA-Public Use
  Company Number: BR-ELI_LILLY_AND_COMPANY-BR201606003791

PATIENT
  Age: 66 Year
  Sex: Male
  Weight: 80 kg

DRUGS (2)
  1. HUMULIN N [Suspect]
     Active Substance: INSULIN HUMAN
     Indication: DIABETES MELLITUS
     Dosage: UNK, EACH MORNING
     Route: 058
  2. HUMULIN N [Suspect]
     Active Substance: INSULIN HUMAN
     Dosage: UNK, EACH EVENING
     Route: 058

REACTIONS (9)
  - Renal disorder [Unknown]
  - Incorrect dose administered [Unknown]
  - Prostatomegaly [Unknown]
  - Cataract [Unknown]
  - Benign neoplasm of prostate [Unknown]
  - Bladder dysfunction [Unknown]
  - Haemorrhage urinary tract [Unknown]
  - Urinary retention [Unknown]
  - Blood glucose abnormal [Unknown]

NARRATIVE: CASE EVENT DATE: 201603
